FAERS Safety Report 17425175 (Version 2)
Quarter: 2020Q1

REPORT INFORMATION
  Report Type: Spontaneous
  Country: IT (occurrence: IT)
  Receive Date: 20200217
  Receipt Date: 20200220
  Transmission Date: 20200409
  Serious: Yes (Other)
  Sender: FDA-Public Use
  Company Number: IT-GLAXOSMITHKLINE-IT2020025244

PATIENT
  Sex: Female

DRUGS (4)
  1. LAMICTAL [Suspect]
     Active Substance: LAMOTRIGINE
     Dosage: 200 MG
  2. LAMICTAL [Suspect]
     Active Substance: LAMOTRIGINE
     Dosage: 100 MG
     Dates: start: 20200211
  3. LAMICTAL [Suspect]
     Active Substance: LAMOTRIGINE
     Indication: BIPOLAR DISORDER
     Dosage: 100 MG
  4. LAMICTAL [Suspect]
     Active Substance: LAMOTRIGINE
     Indication: ANXIETY
     Dosage: 50 MG
     Dates: start: 201905

REACTIONS (11)
  - Withdrawal syndrome [Unknown]
  - Lymphadenopathy [Unknown]
  - Menstruation irregular [Unknown]
  - Adnexa uteri pain [Unknown]
  - Syncope [Unknown]
  - Nausea [Unknown]
  - Vision blurred [Unknown]
  - Headache [Unknown]
  - Drug withdrawal convulsions [Unknown]
  - Fatigue [Unknown]
  - Vomiting [Unknown]
